FAERS Safety Report 16074034 (Version 4)
Quarter: 2019Q2

REPORT INFORMATION
  Report Type: Spontaneous
  Country: US (occurrence: US)
  Receive Date: 20190314
  Receipt Date: 20190623
  Transmission Date: 20190711
  Serious: Yes (Hospitalization)
  Sender: FDA-Public Use
  Company Number: US-VERTEX PHARMACEUTICALS-2019-002078

PATIENT
  Age: 25 Year
  Sex: Female

DRUGS (35)
  1. PULMOZYME [Suspect]
     Active Substance: DORNASE ALFA
     Indication: PRODUCT USED FOR UNKNOWN INDICATION
     Dosage: 2.5/2.5 MG/ ML, QD AT BEDTIME
     Route: 055
  2. SMZ-TMP [Concomitant]
     Active Substance: SULFAMETHOXAZOLE\TRIMETHOPRIM
  3. AZITHROMYCIN ANHYDROUS. [Concomitant]
     Active Substance: AZITHROMYCIN ANHYDROUS
  4. DULOXETINE. [Concomitant]
     Active Substance: DULOXETINE
  5. SODIUM CHLORIDE. [Concomitant]
     Active Substance: SODIUM CHLORIDE
  6. ONDANSETRON [Concomitant]
     Active Substance: ONDANSETRON
  7. POTASSIUM CHLORIDE. [Concomitant]
     Active Substance: POTASSIUM CHLORIDE
  8. TIZANIDINE. [Concomitant]
     Active Substance: TIZANIDINE
  9. VITAMIN D3 [Concomitant]
     Active Substance: CHOLECALCIFEROL
  10. LOSARTAN POTASSIUM. [Concomitant]
     Active Substance: LOSARTAN POTASSIUM
  11. NOVOLOG [Concomitant]
     Active Substance: INSULIN ASPART
  12. LEVOFLOXACIN. [Concomitant]
     Active Substance: LEVOFLOXACIN
  13. CEPHALEXIN                         /00145501/ [Concomitant]
     Active Substance: CEPHALEXIN
  14. ZOLPIDEM [Concomitant]
     Active Substance: ZOLPIDEM\ZOLPIDEM TARTRATE
  15. SYMDEKO [Suspect]
     Active Substance: IVACAFTOR\TEZACAFTOR
     Indication: CYSTIC FIBROSIS
     Dosage: 100 MG TEZACAFTOR/150 MG IVACAFTOR AM; 150 MG IVACAFTOR PM
     Route: 048
     Dates: start: 20180630
  16. ALBUTEROL                          /00139501/ [Concomitant]
     Active Substance: ALBUTEROL
  17. ALBUTEROL HFA [Concomitant]
     Active Substance: ALBUTEROL SULFATE
  18. CONTOUR                            /01479302/ [Concomitant]
  19. OXYCODONE [Concomitant]
     Active Substance: OXYCODONE
  20. PANTOPRAZOLE [Concomitant]
     Active Substance: PANTOPRAZOLE
  21. IBUPROFEN. [Concomitant]
     Active Substance: IBUPROFEN
  22. FLUCONAZOLE. [Concomitant]
     Active Substance: FLUCONAZOLE
  23. RANITIDINE. [Concomitant]
     Active Substance: RANITIDINE
  24. GENTAMYCIN                         /00047101/ [Concomitant]
     Active Substance: GENTAMICIN
  25. LOSARTAN. [Concomitant]
     Active Substance: LOSARTAN
  26. FENTANYL. [Concomitant]
     Active Substance: FENTANYL
  27. TOBRAMYCIN. [Concomitant]
     Active Substance: TOBRAMYCIN
  28. CREON [Concomitant]
     Active Substance: PANCRELIPASE AMYLASE\PANCRELIPASE LIPASE\PANCRELIPASE PROTEASE
  29. METOPROLOL TARTRATE. [Concomitant]
     Active Substance: METOPROLOL TARTRATE
  30. SPIRONOLACTONE. [Concomitant]
     Active Substance: SPIRONOLACTONE
  31. SYMBICORT [Concomitant]
     Active Substance: BUDESONIDE\FORMOTEROL FUMARATE DIHYDRATE
  32. AQUADEKS                           /07679501/ [Concomitant]
     Active Substance: MINERALS\VITAMINS
  33. NASONEX [Concomitant]
     Active Substance: MOMETASONE FUROATE
  34. ZITHROMAX [Concomitant]
     Active Substance: AZITHROMYCIN DIHYDRATE
  35. DOXYCYCLINE. [Concomitant]
     Active Substance: DOXYCYCLINE

REACTIONS (8)
  - Cystic fibrosis [Unknown]
  - Infective pulmonary exacerbation of cystic fibrosis [Unknown]
  - Cystic fibrosis related diabetes [Unknown]
  - Mental status changes [Unknown]
  - Hallucination [Unknown]
  - Lung infection [Recovered/Resolved]
  - Constipation [Unknown]
  - Haemoptysis [Unknown]

NARRATIVE: CASE EVENT DATE: 20190102
